FAERS Safety Report 23141388 (Version 18)
Quarter: 2024Q1

REPORT INFORMATION
  Report Type: Spontaneous
  Country: CA (occurrence: CA)
  Receive Date: 20231103
  Receipt Date: 20240326
  Transmission Date: 20240410
  Serious: Yes (Other)
  Sender: FDA-Public Use
  Company Number: CA-PFIZER INC-PV202300129702

PATIENT
  Age: 53 Year
  Sex: Male
  Weight: 72.5 kg

DRUGS (19)
  1. ZIRABEV [Suspect]
     Active Substance: BEVACIZUMAB-BVZR
     Indication: Oligodendroglioma
     Dosage: 10 MG/KG, EVERY 2 WEEKS
     Route: 042
  2. ZIRABEV [Suspect]
     Active Substance: BEVACIZUMAB-BVZR
     Dosage: 575 MG, EVERY 2 WEEKS
     Route: 042
  3. ZIRABEV [Suspect]
     Active Substance: BEVACIZUMAB-BVZR
     Dosage: 527 MG, EVERY 2 WEEKS
     Route: 042
  4. ZIRABEV [Suspect]
     Active Substance: BEVACIZUMAB-BVZR
     Dosage: 523 MG, EVERY 2 WEEKS
     Route: 042
     Dates: start: 20231012
  5. ZIRABEV [Suspect]
     Active Substance: BEVACIZUMAB-BVZR
     Dosage: 550 MG
     Route: 042
     Dates: start: 20231114
  6. ZIRABEV [Suspect]
     Active Substance: BEVACIZUMAB-BVZR
     Dosage: 550 MG
     Route: 042
     Dates: start: 20231114
  7. ZIRABEV [Suspect]
     Active Substance: BEVACIZUMAB-BVZR
     Dosage: 550 MG, EVERY 3 WEEKS
     Route: 042
     Dates: start: 202311
  8. ZIRABEV [Suspect]
     Active Substance: BEVACIZUMAB-BVZR
     Dosage: 550 MG
     Route: 042
     Dates: start: 20231205
  9. ZIRABEV [Suspect]
     Active Substance: BEVACIZUMAB-BVZR
     Dosage: 550 MG
     Route: 042
     Dates: start: 20231205
  10. ZIRABEV [Suspect]
     Active Substance: BEVACIZUMAB-BVZR
     Dosage: 550 MG
     Route: 042
     Dates: start: 20240118
  11. ZIRABEV [Suspect]
     Active Substance: BEVACIZUMAB-BVZR
     Dosage: 550 MG
     Route: 042
     Dates: start: 20240118
  12. ZIRABEV [Suspect]
     Active Substance: BEVACIZUMAB-BVZR
     Dosage: 379 MG
     Route: 042
  13. ZIRABEV [Suspect]
     Active Substance: BEVACIZUMAB-BVZR
     Dosage: 610 MG
     Route: 042
     Dates: start: 20240208
  14. ZIRABEV [Suspect]
     Active Substance: BEVACIZUMAB-BVZR
     Dosage: 610 MG
     Route: 042
     Dates: start: 20240208
  15. ZIRABEV [Suspect]
     Active Substance: BEVACIZUMAB-BVZR
     Dosage: 610 MG
     Route: 042
     Dates: start: 202402
  16. ZIRABEV [Suspect]
     Active Substance: BEVACIZUMAB-BVZR
     Dosage: 610 MG
     Route: 042
     Dates: start: 20240229
  17. ZIRABEV [Suspect]
     Active Substance: BEVACIZUMAB-BVZR
     Dosage: 610 MG
     Route: 042
     Dates: start: 20240229
  18. ZIRABEV [Suspect]
     Active Substance: BEVACIZUMAB-BVZR
     Dosage: 610 MG, EVERY 3 WEEKS (TO START)
  19. ZIRABEV [Suspect]
     Active Substance: BEVACIZUMAB-BVZR
     Dosage: 610 MG
     Route: 042
     Dates: start: 20240321

REACTIONS (13)
  - Malaise [Unknown]
  - Fatigue [Unknown]
  - Constipation [Unknown]
  - Infusion site extravasation [Unknown]
  - Infusion site pain [Unknown]
  - Poor venous access [Unknown]
  - Blood pressure fluctuation [Not Recovered/Not Resolved]
  - Vomiting [Recovered/Resolved]
  - Incoherent [Unknown]
  - Weight increased [Unknown]
  - Nasopharyngitis [Unknown]
  - Weight decreased [Unknown]
  - Off label use [Unknown]

NARRATIVE: CASE EVENT DATE: 20230101
